FAERS Safety Report 6730458-4 (Version None)
Quarter: 2010Q2

REPORT INFORMATION
  Report Type: 
  Country: None (occurrence: None)
  Receive Date: 20100518
  Receipt Date: 20100507
  Transmission Date: 20101027
  Serious: Yes (Hospitalization)
  Sender: FDA-Public Use
  Company Number: FR-WYE-H15055110

PATIENT
  Age: 80 Year
  Sex: Male

DRUGS (6)
  1. CORDARONE [Suspect]
     Dosage: 200 MG (FREQUENCY UNSPECIFIED)
     Route: 048
     Dates: start: 20091001, end: 20100322
  2. ROSUVASTATIN [Suspect]
     Dosage: UNSPECIFIED
     Route: 048
     Dates: start: 20100101, end: 20100322
  3. ESOMEPRAZOLE [Suspect]
     Dosage: UNSPECIFIED
     Route: 048
     Dates: start: 20090901, end: 20100322
  4. RAMIPRIL [Suspect]
     Dosage: UNSPECIFIED
     Route: 048
     Dates: start: 20100201, end: 20100301
  5. PREVISCAN [Suspect]
     Dosage: DOSE UNSPECIFIED (DAILY)
     Route: 048
     Dates: start: 20091001, end: 20100301
  6. CARDENSIEL [Suspect]
     Dosage: UNSPECIFIED
     Route: 048
     Dates: start: 20091001, end: 20100322

REACTIONS (1)
  - VASCULAR PURPURA [None]
